FAERS Safety Report 24122065 (Version 1)
Quarter: 2024Q3

REPORT INFORMATION
  Report Type: Spontaneous
  Country: IT (occurrence: IT)
  Receive Date: 20240722
  Receipt Date: 20240722
  Transmission Date: 20241017
  Serious: Yes (Other)
  Sender: GILEAD
  Company Number: None

PATIENT
  Age: 72 Year
  Sex: Male

DRUGS (12)
  1. YESCARTA [Suspect]
     Active Substance: AXICABTAGENE CILOLEUCEL
     Indication: Diffuse large B-cell lymphoma refractory
     Route: 042
     Dates: start: 20240604, end: 20240604
  2. FELODIPINE [Concomitant]
     Active Substance: FELODIPINE
  3. LAMIVUDINE [Concomitant]
     Active Substance: LAMIVUDINE
  4. SITAGLIPTIN [Concomitant]
     Active Substance: SITAGLIPTIN
  5. SIMVASTATINA + EZETIMIBA [Concomitant]
  6. ASPIRIN [Concomitant]
     Active Substance: ASPIRIN
  7. ACYCLOVIR [Concomitant]
     Active Substance: ACYCLOVIR
  8. ISAVUCONAZOLE [Concomitant]
     Active Substance: ISAVUCONAZOLE
  9. GLICLAZIDE [Concomitant]
     Active Substance: GLICLAZIDE
  10. PROPRANOLOL [Concomitant]
     Active Substance: PROPRANOLOL HYDROCHLORIDE
  11. BACTRIM [Concomitant]
     Active Substance: SULFAMETHOXAZOLE\TRIMETHOPRIM
  12. LEVETIRACETAM [Concomitant]
     Active Substance: LEVETIRACETAM

REACTIONS (3)
  - Bacterial sepsis [Recovered/Resolved]
  - Anaemia [Recovered/Resolved]
  - Cytokine release syndrome [Recovered/Resolved]

NARRATIVE: CASE EVENT DATE: 20240605
